FAERS Safety Report 7737779-7 (Version None)
Quarter: 2011Q3

REPORT INFORMATION
  Report Type: 
  Country: None (occurrence: None)
  Receive Date: 20110906
  Receipt Date: 20110822
  Transmission Date: 20111222
  Serious: Yes (Other)
  Sender: FDA-Public Use
  Company Number: AUR-APL-2011-04860

PATIENT
  Age: 64 Year
  Sex: Female
  Weight: 93.88 kg

DRUGS (7)
  1. ATENOLOL [Suspect]
     Indication: BLOOD PRESSURE
     Dosage: 100 MG (50 MG, 2 IN 1 D), ORAL
     Route: 048
  2. LIPITOR [Suspect]
     Indication: PRODUCT USED FOR UNKNOWN INDICATION
     Dosage: 20 MG, ORAL
     Route: 048
     Dates: start: 20110301, end: 20110327
  3. METFORMIN HCL [Suspect]
     Indication: PRODUCT USED FOR UNKNOWN INDICATION
     Dosage: 500 MG (500 MG, 1 IN 1 D), ORAL
     Route: 048
  4. BENICAR [Suspect]
     Indication: PRODUCT USED FOR UNKNOWN INDICATION
     Dosage: 40 MG, ORAL
     Route: 048
  5. TRICOR [Suspect]
     Indication: PRODUCT USED FOR UNKNOWN INDICATION
     Dosage: 145 MG (145 MG, 1 IN 1 D), ORAL
     Route: 048
  6. NORVASC [Suspect]
     Indication: BLOOD PRESSURE
     Dosage: 10 MG
  7. KLOR-CON [Suspect]
     Indication: MINERAL SUPPLEMENTATION
     Dosage: 20 MG (10 MG, 2 IN 1 D)
     Dates: end: 20110421

REACTIONS (4)
  - ACTIVITIES OF DAILY LIVING IMPAIRED [None]
  - MYALGIA [None]
  - OEDEMA PERIPHERAL [None]
  - DRUG INTERACTION [None]
